FAERS Safety Report 8373103-7 (Version None)
Quarter: 2012Q2

REPORT INFORMATION
  Report Type: 
  Country: None (occurrence: None)
  Receive Date: 20120521
  Receipt Date: 20120515
  Transmission Date: 20120825
  Serious: Yes (Life-Threatening, Congenital Anomaly, Other)
  Sender: FDA-Public Use
  Company Number: US-PFIZER INC-2012044626

PATIENT
  Sex: Male

DRUGS (9)
  1. SERTRALINE HYDROCHLORIDE [Suspect]
     Dosage: 50 MG, UNK
     Route: 064
     Dates: start: 20080926
  2. ZOLOFT [Suspect]
     Dosage: 50 MG, DAILY
     Route: 064
     Dates: start: 20080926
  3. ZOLOFT [Suspect]
     Dosage: 100 MG, 1X/DAY
     Route: 064
     Dates: start: 20090528
  4. AMOXICILLIN [Concomitant]
     Indication: SINUSITIS
     Dosage: UNK
     Route: 064
  5. ZOLOFT [Suspect]
     Indication: DEPRESSION
     Dosage: 25 MG, DAILY
     Route: 064
     Dates: start: 20080926
  6. EFFEXOR XR [Concomitant]
     Dosage: UNK
     Route: 064
  7. SERTRALINE HYDROCHLORIDE [Suspect]
     Dosage: 100 MG, UNK
     Route: 064
     Dates: start: 20090528
  8. SERTRALINE HYDROCHLORIDE [Suspect]
     Dosage: 25 MG, UNK
     Route: 064
     Dates: start: 20080926
  9. EFFEXOR [Suspect]
     Dosage: UNK
     Route: 064

REACTIONS (5)
  - CONGENITAL ANOMALY [None]
  - MATERNAL EXPOSURE DURING PREGNANCY [None]
  - HEART DISEASE CONGENITAL [None]
  - COARCTATION OF THE AORTA [None]
  - MATERNAL DRUGS AFFECTING FOETUS [None]
